FAERS Safety Report 13368685 (Version 2)
Quarter: 2017Q2

REPORT INFORMATION
  Report Type: Spontaneous
  Country: AT (occurrence: AT)
  Receive Date: 20170324
  Receipt Date: 20170411
  Transmission Date: 20170830
  Serious: Yes (Hospitalization, Disabling)
  Sender: FDA-Public Use
  Company Number: AT-SA-2017SA046963

PATIENT
  Age: 35 Year
  Sex: Female
  Weight: 55 kg

DRUGS (2)
  1. LEMTRADA [Suspect]
     Active Substance: ALEMTUZUMAB
     Indication: MULTIPLE SCLEROSIS
     Route: 041
     Dates: start: 20150203, end: 20150207
  2. LEMTRADA [Suspect]
     Active Substance: ALEMTUZUMAB
     Indication: MULTIPLE SCLEROSIS
     Route: 041
     Dates: start: 20160212, end: 20160214

REACTIONS (8)
  - Uhthoff^s phenomenon [Recovered/Resolved]
  - Anti-thyroid antibody positive [Unknown]
  - Hyperthyroidism [Recovered/Resolved]
  - Hyperhidrosis [Recovered/Resolved]
  - Autoimmune thyroiditis [Unknown]
  - Tachycardia [Recovered/Resolved]
  - Blood thyroid stimulating hormone decreased [Unknown]
  - Thyroid stimulating immunoglobulin [Unknown]
